FAERS Safety Report 15170034 (Version 8)
Quarter: 2018Q4

REPORT INFORMATION
  Report Type: Spontaneous
  Country: US (occurrence: US)
  Receive Date: 20180720
  Receipt Date: 20181226
  Transmission Date: 20190204
  Serious: Yes (Hospitalization)
  Sender: FDA-Public Use
  Company Number: US-PFIZER INC-2018290147

PATIENT
  Age: 72 Year
  Sex: Male
  Weight: 113 kg

DRUGS (2)
  1. SUTENT [Suspect]
     Active Substance: SUNITINIB MALATE
     Indication: RENAL CANCER METASTATIC
     Dosage: 50 MG, CYCLIC (D1-28 Q42DAYS)
     Route: 048
     Dates: start: 20180709, end: 2018
  2. SUTENT [Suspect]
     Active Substance: SUNITINIB MALATE
     Dosage: 37.5 MG, CYCLIC (4WEEKS ON AND 2 WEEKS OFF/DAYS 1-28 Q42 DAYS)
     Route: 048
     Dates: start: 2018, end: 2018

REACTIONS (20)
  - Asthenia [Unknown]
  - Abdominal distension [Unknown]
  - Constipation [Unknown]
  - Weight decreased [Unknown]
  - Diarrhoea [Unknown]
  - Gait inability [Unknown]
  - Hypoaesthesia [Unknown]
  - Gait disturbance [Unknown]
  - Tongue injury [Unknown]
  - Nausea [Unknown]
  - Abdominal pain [Unknown]
  - Balance disorder [Unknown]
  - Dysgeusia [Unknown]
  - Platelet count decreased [Recovered/Resolved]
  - Stomatitis [Unknown]
  - Full blood count decreased [Unknown]
  - Muscular weakness [Unknown]
  - Deep vein thrombosis [Unknown]
  - Pollakiuria [Unknown]
  - Epistaxis [Unknown]

NARRATIVE: CASE EVENT DATE: 2018
